FAERS Safety Report 18001727 (Version 4)
Quarter: 2020Q4

REPORT INFORMATION
  Report Type: Report from Study
  Country: US (occurrence: US)
  Receive Date: 20200709
  Receipt Date: 20201030
  Transmission Date: 20210113
  Serious: No
  Sender: FDA-Public Use
  Company Number: NVSC2020US193684

PATIENT
  Sex: Female

DRUGS (2)
  1. COSENTYX [Suspect]
     Active Substance: SECUKINUMAB
     Indication: PSORIASIS
     Dosage: UNK (3/4 WAY THROUGH FIRST 4 WEEK MAINTAINENCE DOSE)
     Route: 065
  2. COSENTYX [Suspect]
     Active Substance: SECUKINUMAB
     Indication: PSORIATIC ARTHROPATHY

REACTIONS (4)
  - Arthralgia [Not Recovered/Not Resolved]
  - Frustration tolerance decreased [Unknown]
  - Pigmentation disorder [Recovered/Resolved]
  - Nail disorder [Recovered/Resolved]
